FAERS Safety Report 13237248 (Version 1)
Quarter: 2017Q1

REPORT INFORMATION
  Report Type: Report from Study
  Country: US (occurrence: US)
  Receive Date: 20170215
  Receipt Date: 20170215
  Transmission Date: 20170428
  Serious: Yes (Hospitalization)
  Sender: FDA-Public Use
  Company Number: US-ACTELION-A-US2015-128758

PATIENT
  Age: 67 Year
  Sex: Female

DRUGS (5)
  1. UPTRAVI [Suspect]
     Active Substance: SELEXIPAG
     Indication: PULMONARY ARTERIAL HYPERTENSION
     Dosage: 800 MCG, UNK
     Route: 048
  2. UPTRAVI [Suspect]
     Active Substance: SELEXIPAG
     Dosage: 400 MCG, BID
     Route: 048
     Dates: start: 20160324
  3. OPSUMIT [Suspect]
     Active Substance: MACITENTAN
     Indication: PULMONARY ARTERIAL HYPERTENSION
     Dosage: 10 MG, QD
     Route: 048
     Dates: start: 20140210
  4. TYVASO [Concomitant]
     Active Substance: TREPROSTINIL
     Dosage: UNK MG, UNK
  5. DILTIAZEM. [Concomitant]
     Active Substance: DILTIAZEM

REACTIONS (9)
  - Influenza [Unknown]
  - Nausea [Unknown]
  - Insomnia [Unknown]
  - Restless legs syndrome [Unknown]
  - Dehydration [Unknown]
  - Headache [Unknown]
  - Vomiting [Unknown]
  - Muscle spasms [Unknown]
  - Abdominal discomfort [Unknown]
